FAERS Safety Report 10405340 (Version 1)
Quarter: 2014Q3

REPORT INFORMATION
  Report Type: Spontaneous
  Country: PT (occurrence: None)
  Receive Date: 20140820
  Receipt Date: 20140820
  Transmission Date: 20150326
  Serious: Yes (Life-Threatening, Hospitalization)
  Sender: FDA-Public Use
  Company Number: PT-H14001-14-00382

PATIENT
  Age: 54 Year
  Sex: Male
  Weight: 70 kg

DRUGS (4)
  1. AMOXICILLIN AND CLAVULANIC ACID [Concomitant]
     Active Substance: AMOXICILLIN\CLAVULANIC ACID
  2. AMIODARONA [Suspect]
     Active Substance: AMIODARONE
     Indication: ATRIAL FIBRILLATION
     Dosage: (1200 MG, 1 IN 1 D, INTAVENOUS (NOT OTHERWISE SPECIFIED)
     Route: 042
     Dates: start: 20140204, end: 20140206
  3. AZITHROMYCIN [Suspect]
     Active Substance: AZITHROMYCIN ANHYDROUS
     Indication: PNEUMONIA
     Dosage: (500 MG, 1 IN 1 D) (NOT OTHERWISE SPECIFIED)
     Route: 042
     Dates: start: 20140205
  4. PANTOPRAZOLE [Concomitant]
     Active Substance: PANTOPRAZOLE SODIUM

REACTIONS (4)
  - Cardiogenic shock [None]
  - Hepatitis acute [None]
  - Drug interaction [None]
  - Renal failure acute [None]

NARRATIVE: CASE EVENT DATE: 201402
